FAERS Safety Report 8340301-8 (Version None)
Quarter: 2012Q2

REPORT INFORMATION
  Report Type: 
  Country: None (occurrence: None)
  Receive Date: 20120507
  Receipt Date: 20120507
  Transmission Date: 20120825
  Serious: Yes (Disabling)
  Sender: FDA-Public Use
  Company Number: None

PATIENT
  Sex: Female
  Weight: 84.368 kg

DRUGS (1)
  1. FERAHEME [Suspect]
     Indication: IRON DEFICIENCY ANAEMIA
     Dosage: |DOSAGETEXT: 510MG||STRENGTH: 510MG||FREQ: 2 DOSES||ROUTE: INTRAVENOUS (NOT OTHERWISE SPECIFIED)|
     Route: 042
     Dates: start: 20120328, end: 20120328

REACTIONS (2)
  - THROAT TIGHTNESS [None]
  - BACK PAIN [None]
